FAERS Safety Report 15834577 (Version 1)
Quarter: 2019Q1

REPORT INFORMATION
  Report Type: Spontaneous
  Country: US (occurrence: US)
  Receive Date: 20190116
  Receipt Date: 20190116
  Transmission Date: 20190417
  Serious: No
  Sender: FDA-Public Use
  Company Number: US-TAKEDA-2019TUS001524

PATIENT
  Sex: Female
  Weight: 58.96 kg

DRUGS (2)
  1. COLCRYS [Suspect]
     Active Substance: COLCHICINE
     Indication: CARTILAGE INJURY
     Dosage: 0.6 MG, QD
     Route: 048
  2. CELEBREX [Concomitant]
     Active Substance: CELECOXIB
     Indication: ARTHRITIS
     Dosage: UNK
     Route: 065

REACTIONS (4)
  - Muscular weakness [Recovered/Resolved]
  - Paraesthesia [Recovered/Resolved]
  - Off label use [Unknown]
  - Hypoaesthesia [Recovered/Resolved]
